FAERS Safety Report 9257997 (Version 1)
Quarter: 2013Q2

REPORT INFORMATION
  Report Type: Spontaneous
  Country: FR (occurrence: FR)
  Receive Date: 20130426
  Receipt Date: 20130426
  Transmission Date: 20140414
  Serious: Yes (Hospitalization)
  Sender: FDA-Public Use
  Company Number: FR-ELI_LILLY_AND_COMPANY-FR201304006261

PATIENT
  Age: 49 Year
  Sex: Male

DRUGS (11)
  1. ZYPREXA [Suspect]
     Indication: PSYCHOTIC DISORDER
     Dosage: 10 MG, QD
     Route: 048
     Dates: start: 20130208, end: 20130211
  2. ZYPREXA [Suspect]
     Dosage: 10 MG, BID
     Dates: start: 20130212, end: 20130219
  3. ZYPREXA [Suspect]
     Dosage: 10 MG, TID
     Dates: start: 20130220, end: 20130221
  4. NOZINAN [Concomitant]
     Indication: PSYCHOTIC DISORDER
     Dosage: 25 MG, BID
  5. NOZINAN [Concomitant]
     Dosage: 300 MG, SINGLE
     Dates: start: 20130220, end: 20130220
  6. NOZINAN [Concomitant]
     Dosage: 400 MG, SINGLE
     Dates: start: 20130221, end: 20130221
  7. RISPERDAL [Concomitant]
     Indication: PSYCHOTIC DISORDER
     Dosage: UNK
     Dates: end: 20130212
  8. LOXAPAC [Concomitant]
     Dosage: 25 MG, BID
     Dates: start: 20130213, end: 20130217
  9. LOXAPAC [Concomitant]
     Dosage: 50 MG, EACH EVENING
     Dates: start: 20130213, end: 20130217
  10. LOXAPAC [Concomitant]
     Dosage: 100 MG, BID
     Dates: start: 20130218, end: 20130220
  11. LOXAPAC [Concomitant]
     Dosage: 150 MG, EACH EVENING
     Dates: start: 20130218, end: 20130220

REACTIONS (7)
  - Confusional state [Recovered/Resolved]
  - Myoclonus [Recovered/Resolved]
  - Disturbance in attention [Recovered/Resolved]
  - Pupillary reflex impaired [Recovered/Resolved]
  - Cell death [Recovered/Resolved]
  - Vitamin B6 deficiency [Recovered/Resolved]
  - Prescribed overdose [Recovered/Resolved]
